FAERS Safety Report 9384757 (Version 1)
Quarter: 2013Q3

REPORT INFORMATION
  Report Type: Spontaneous
  Country: US (occurrence: US)
  Receive Date: 20130705
  Receipt Date: 20130705
  Transmission Date: 20140515
  Serious: Yes (Other)
  Sender: FDA-Public Use
  Company Number: US-PFIZER INC-2013185943

PATIENT
  Age: 66 Year
  Sex: Male

DRUGS (9)
  1. LYRICA [Suspect]
     Dosage: 100 MG, 3X/DAY
  2. ARICEPT [Suspect]
     Dosage: UNK
  3. DETROL [Suspect]
     Dosage: UNK
  4. EFFEXOR XR [Suspect]
     Dosage: UNK
  5. XANAX [Suspect]
     Dosage: UNK
  6. BUSPAR [Concomitant]
     Dosage: UNK
  7. SEROQUEL [Concomitant]
     Dosage: UNK
  8. ZESTRIL [Concomitant]
     Dosage: UNK
  9. EFFEXOR [Concomitant]
     Dosage: UNK

REACTIONS (2)
  - Depression [Unknown]
  - Fear [Unknown]
